FAERS Safety Report 19210766 (Version 1)
Quarter: 2021Q2

REPORT INFORMATION
  Report Type: Spontaneous
  Country: CO (occurrence: CO)
  Receive Date: 20210504
  Receipt Date: 20210504
  Transmission Date: 20210717
  Serious: Yes (Death, Hospitalization)
  Sender: FDA-Public Use
  Company Number: CO-SAMOHPHARM-2021001595

PATIENT

DRUGS (6)
  1. CARBAGLU [Suspect]
     Active Substance: CARGLUMIC ACID
     Indication: METHYLMALONIC ACIDURIA
     Dosage: 100 MILLIGRAM, Q8H, GASTROSTOMY TUBE
     Route: 050
     Dates: start: 20210202, end: 20210421
  2. MMA/PA ANAMIX [Concomitant]
     Indication: METHYLMALONIC ACIDURIA
     Dosage: 60 MILLILITER, C/4H
  3. LEVETIRACETAM. [Concomitant]
     Active Substance: LEVETIRACETAM
     Indication: METHYLMALONIC ACIDURIA
     Dosage: 72 MILLIGRAM, C/6H
     Route: 042
     Dates: start: 20210202, end: 20210421
  4. CARNITINE [Concomitant]
     Active Substance: CARNITINE
     Indication: METHYLMALONIC ACIDURIA
     Dosage: 430 MILLIGRAM, C/8H
  5. BIOTIN [Concomitant]
     Active Substance: BIOTIN
     Indication: METHYLMALONIC ACIDURIA
     Dosage: 17 MILLIGRAM, QD
  6. VIGABATRIN. [Concomitant]
     Active Substance: VIGABATRIN
     Indication: METHYLMALONIC ACIDURIA
     Dosage: 360 MILLIGRAM, C/12H

REACTIONS (1)
  - Multiple organ dysfunction syndrome [Fatal]

NARRATIVE: CASE EVENT DATE: 20210421
